FAERS Safety Report 22534427 (Version 1)
Quarter: 2023Q2

REPORT INFORMATION
  Report Type: Spontaneous
  Country: CN (occurrence: CN)
  Receive Date: 20230608
  Receipt Date: 20230608
  Transmission Date: 20230721
  Serious: Yes (Other)
  Sender: FDA-Public Use
  Company Number: None

PATIENT
  Age: 41 Year
  Sex: Female
  Weight: 72 kg

DRUGS (2)
  1. CYCLOPHOSPHAMIDE [Suspect]
     Active Substance: CYCLOPHOSPHAMIDE
     Indication: Plasma cell myeloma
     Dosage: 2.5 G, Q12H (ALSO REPORTED AS TWICE DAILY), ROUTE: INTRA-PUMP, DILUTED WITH 0.9% NORMAL SALINE (NS)
     Route: 050
     Dates: start: 20230424, end: 20230424
  2. SODIUM CHLORIDE [Suspect]
     Active Substance: SODIUM CHLORIDE
     Indication: Medication dilution
     Dosage: 250 ML, Q12H (ALSO REPORTED AS TWICE EACH DAY), STRENGTH: 0.9%, ROUTE: INTRA-PUMP, USED TO DILUTE CY
     Route: 050
     Dates: start: 20230424, end: 20230424

REACTIONS (2)
  - Myelosuppression [Recovering/Resolving]
  - Pancytopenia [Recovering/Resolving]

NARRATIVE: CASE EVENT DATE: 20230505
